FAERS Safety Report 8553571-8 (Version None)
Quarter: 2012Q3

REPORT INFORMATION
  Report Type: 
  Country: None (occurrence: None)
  Receive Date: 20120731
  Receipt Date: 20120725
  Transmission Date: 20120928
  Serious: Yes (Hospitalization, Other)
  Sender: FDA-Public Use
  Company Number: US-PFIZER INC-2011243634

PATIENT
  Sex: Female

DRUGS (6)
  1. DILANTIN [Suspect]
     Indication: CONVULSION
     Dosage: 1 G, UNK
     Route: 042
     Dates: start: 20110112, end: 20110112
  2. DILANTIN [Suspect]
     Dosage: 100 MG, 4X/DAY
     Route: 042
     Dates: start: 20110112, end: 20110112
  3. DILANTIN [Suspect]
     Dosage: 200 MG, 2X/DAY
     Route: 048
     Dates: start: 20110113, end: 20110113
  4. DILANTIN [Suspect]
     Dosage: 50MG INFATABS TWICE DAILY ALONG WITH PHENYTOIN 200MG CAPSULES TO MAKE TOTAL DAILY DOSE OF 500MG
     Route: 048
     Dates: start: 20110114
  5. DILANTIN-125 [Suspect]
     Indication: CONVULSION
     Dosage: UNK
     Dates: start: 20101201
  6. DILANTIN [Suspect]
     Dosage: 200MG CAPSULES TWICE DAILY ALONG WITH PHENYTOIN INFATABS 50MG TO MAKE TOTAL DAILY DOSE OF 500MG
     Route: 048
     Dates: start: 20110114

REACTIONS (2)
  - STEVENS-JOHNSON SYNDROME [None]
  - TOXIC EPIDERMAL NECROLYSIS [None]
